FAERS Safety Report 18749562 (Version 3)
Quarter: 2022Q1

REPORT INFORMATION
  Report Type: Other
  Country: US (occurrence: None)
  Receive Date: 20210116
  Receipt Date: 20220317
  Transmission Date: 20220423
  Serious: Yes (Other)
  Sender: FDA-Public Use
  Company Number: US-ROCHE-2336304

PATIENT
  Age: 74 Year
  Sex: Female
  Weight: 86.260 kg

DRUGS (40)
  1. ESBRIET [Suspect]
     Active Substance: PIRFENIDONE
     Indication: Idiopathic pulmonary fibrosis
     Route: 048
  2. ESBRIET [Suspect]
     Active Substance: PIRFENIDONE
     Indication: Systemic scleroderma
     Route: 048
  3. ESBRIET [Suspect]
     Active Substance: PIRFENIDONE
     Indication: Idiopathic pulmonary fibrosis
     Route: 048
  4. ESBRIET [Suspect]
     Active Substance: PIRFENIDONE
     Indication: Back pain
     Route: 048
  5. ESBRIET [Suspect]
     Active Substance: PIRFENIDONE
     Indication: Lung abscess
     Route: 048
  6. ESBRIET [Suspect]
     Active Substance: PIRFENIDONE
     Indication: Mediastinal abscess
  7. RITUXAN [Suspect]
     Active Substance: RITUXIMAB
     Indication: Systemic scleroderma
     Route: 065
  8. PREDNISONE [Suspect]
     Active Substance: PREDNISONE
     Indication: Product used for unknown indication
     Dosage: ALTERNATE 5 MG AND 10 MG EVERY OTHER DAY ;ONGOING: YES
     Route: 065
  9. TYLENOL [Concomitant]
     Active Substance: ACETAMINOPHEN
     Indication: Pain
  10. XANAX [Concomitant]
     Active Substance: ALPRAZOLAM
  11. VITAMIN C [Concomitant]
     Active Substance: ASCORBIC ACID
  12. ANACIN (ASPIRIN\CAFFEINE) [Concomitant]
     Active Substance: ASPIRIN\CAFFEINE
     Dosage: 400-31 MG
  13. ASTEPRO [Concomitant]
     Active Substance: AZELASTINE HYDROCHLORIDE
  14. CHOLECALCIFEROL [Concomitant]
     Active Substance: CHOLECALCIFEROL
  15. PLAVIX [Concomitant]
     Active Substance: CLOPIDOGREL BISULFATE
     Indication: Product used for unknown indication
  16. VITAMIN B12 [Concomitant]
     Active Substance: CYANOCOBALAMIN
     Dosage: 1000 MG/M
  17. CRANBERRY [Concomitant]
     Active Substance: CRANBERRY
  18. NEXIUM [Concomitant]
     Active Substance: ESOMEPRAZOLE MAGNESIUM
  19. ESTRACE [Concomitant]
     Active Substance: ESTRADIOL
     Dosage: 0.01% CREAM
  20. ESTRATEST [Concomitant]
     Active Substance: ESTROGENS, ESTERIFIED\METHYLTESTOSTERONE
     Dosage: 1.25-2.5 MG
  21. FERROUS SULFATE [Concomitant]
     Active Substance: FERROUS SULFATE
  22. DIFLUCAN [Concomitant]
     Active Substance: FLUCONAZOLE
  23. DALMANE [Concomitant]
     Active Substance: FLURAZEPAM HYDROCHLORIDE
  24. SYNTHROID [Concomitant]
     Active Substance: LEVOTHYROXINE SODIUM
  25. METOPROLOL TARTRATE [Concomitant]
     Active Substance: METOPROLOL TARTRATE
  26. BYSTOLIC [Concomitant]
     Active Substance: NEBIVOLOL HYDROCHLORIDE
  27. PROCARDIA XL [Concomitant]
     Active Substance: NIFEDIPINE
  28. PRILOSEC [Concomitant]
     Active Substance: OMEPRAZOLE MAGNESIUM
  29. DELTASONE [Concomitant]
     Active Substance: PREDNISONE
  30. PROAIR HFA [Concomitant]
     Active Substance: ALBUTEROL SULFATE
  31. PHENERGAN [Concomitant]
     Active Substance: PROMETHAZINE HYDROCHLORIDE
  32. ZOCOR [Concomitant]
     Active Substance: SIMVASTATIN
  33. FORTEO [Concomitant]
     Active Substance: TERIPARATIDE
  34. SYMBICORT [Concomitant]
     Active Substance: BUDESONIDE\FORMOTEROL FUMARATE DIHYDRATE
  35. AMBIEN [Concomitant]
     Active Substance: ZOLPIDEM TARTRATE
  36. RECLAST [Concomitant]
     Active Substance: ZOLEDRONIC ACID
  37. LEVOTHYROXINE [Concomitant]
     Active Substance: LEVOTHYROXINE
  38. OXYGEN [Concomitant]
     Active Substance: OXYGEN
  39. ASPIRIN [Concomitant]
     Active Substance: ASPIRIN
  40. NORVASC [Concomitant]
     Active Substance: AMLODIPINE BESYLATE

REACTIONS (6)
  - Pneumonia [Unknown]
  - Resorption bone increased [Not Recovered/Not Resolved]
  - Malaise [Recovering/Resolving]
  - Weight decreased [Not Recovered/Not Resolved]
  - Gastric disorder [Not Recovered/Not Resolved]
  - Off label use [Unknown]

NARRATIVE: CASE EVENT DATE: 20181201
